FAERS Safety Report 14443539 (Version 1)
Quarter: 2018Q1

REPORT INFORMATION
  Report Type: Report from Study
  Country: US (occurrence: US)
  Receive Date: 20180125
  Receipt Date: 20180125
  Transmission Date: 20180509
  Serious: No
  Sender: FDA-Public Use
  Company Number: US-AMGEN-USASL2017167914

PATIENT
  Age: 73 Year
  Sex: Female
  Weight: 65.79 kg

DRUGS (2)
  1. KYPROLIS [Suspect]
     Active Substance: CARFILZOMIB
     Dosage: 43 MG, ON DAY 1, 2, 8, 9, 15 AND 16 EVERY 28 DAYS
     Route: 042
     Dates: start: 201711
  2. KYPROLIS [Suspect]
     Active Substance: CARFILZOMIB
     Indication: PLASMA CELL MYELOMA
     Dosage: 32 MG, ON DAY 1, 2
     Route: 042
     Dates: start: 20171106

REACTIONS (1)
  - Anxiety [Recovering/Resolving]

NARRATIVE: CASE EVENT DATE: 20171106
